FAERS Safety Report 5306488-6 (Version None)
Quarter: 2007Q2

REPORT INFORMATION
  Report Type: 
  Country: None (occurrence: None)
  Receive Date: 20070417
  Receipt Date: 20070411
  Transmission Date: 20071010
  Serious: Yes (Life-Threatening)
  Sender: FDA-Public Use
  Company Number: 2007-157113-NL

PATIENT
  Age: 41 Year
  Sex: Male

DRUGS (2)
  1. MIRTAZAPINE [Suspect]
     Dosage: DF
     Dates: start: 20061001, end: 20070314
  2. QUETIAPINE FUMARATE [Suspect]
     Dosage: DF

REACTIONS (4)
  - DRUG INEFFECTIVE [None]
  - PARANOIA [None]
  - PERSONALITY DISORDER [None]
  - SELF INJURIOUS BEHAVIOUR [None]
